FAERS Safety Report 15832196 (Version 2)
Quarter: 2019Q1

REPORT INFORMATION
  Report Type: Spontaneous
  Country: US (occurrence: US)
  Receive Date: 20190116
  Receipt Date: 20190118
  Transmission Date: 20190417
  Serious: No
  Sender: FDA-Public Use
  Company Number: US-BAYER-2019-011976

PATIENT
  Age: 16 Year
  Sex: Female

DRUGS (1)
  1. SKYLA [Suspect]
     Active Substance: LEVONORGESTREL
     Indication: CONTRACEPTION
     Dosage: 14 MCG/24HR
     Route: 015
     Dates: start: 20181130, end: 20181226

REACTIONS (3)
  - Intentional medical device removal by patient [None]
  - Device expulsion [None]
  - Medical device discomfort [None]

NARRATIVE: CASE EVENT DATE: 20181226
